FAERS Safety Report 13226677 (Version 2)
Quarter: 2017Q1

REPORT INFORMATION
  Report Type: Report from Study
  Country: US (occurrence: US)
  Receive Date: 20170213
  Receipt Date: 20170308
  Transmission Date: 20170428
  Serious: Yes (Hospitalization, Other)
  Sender: FDA-Public Use
  Company Number: US-PFIZER INC-2017038776

PATIENT
  Age: 68 Year
  Sex: Female

DRUGS (1)
  1. IBRANCE [Suspect]
     Active Substance: PALBOCICLIB
     Indication: BREAST CANCER
     Dosage: 125 MG, CYCLIC, (DAILY; 3 WEEKS ON AND 1WEEK OFF / DAILY FOR DAY 1-DAY21 FOLLOWED BY 7 DAYS OFF )
     Route: 048
     Dates: start: 20170113, end: 20170301

REACTIONS (2)
  - Escherichia bacteraemia [Unknown]
  - Neoplasm progression [Unknown]
